FAERS Safety Report 8804415 (Version 1)
Quarter: 2012Q4

REPORT INFORMATION
  Report Type: 
  Country: US (occurrence: US)
  Receive Date: 20120924
  Receipt Date: 20120924
  Transmission Date: 20130627
  Serious: Yes (Death)
  Sender: FDA-Public Use
  Company Number: US-BAYER-2012-099025

PATIENT
  Age: 59 Year
  Sex: Female

DRUGS (2)
  1. BETASERON [Suspect]
     Dosage: 0.3 mg, QOD
     Route: 058
  2. PROZAC [Concomitant]
     Dosage: 10 mg, UNK

REACTIONS (1)
  - Death [Fatal]
